FAERS Safety Report 13026085 (Version 1)
Quarter: 2016Q4

REPORT INFORMATION
  Report Type: Spontaneous
  Country: US (occurrence: US)
  Receive Date: 20161213
  Receipt Date: 20161213
  Transmission Date: 20170207
  Serious: Yes (Disabling)
  Sender: FDA-Public Use
  Company Number: None

PATIENT
  Age: 49 Year
  Sex: Female
  Weight: 45 kg

DRUGS (9)
  1. CALCIUM-MAGNESIUM-ZINC [Concomitant]
  2. SYNTHROID [Suspect]
     Active Substance: LEVOTHYROXINE SODIUM
     Indication: HYPOTHYROIDISM
     Route: 048
     Dates: start: 20160912, end: 20161012
  3. TOPAMAX [Concomitant]
     Active Substance: TOPIRAMATE
  4. VICODIN [Concomitant]
     Active Substance: ACETAMINOPHEN\HYDROCODONE BITARTRATE
  5. VITAMIN D [Concomitant]
     Active Substance: CHOLECALCIFEROL
  6. LEVTHYROXINE [Concomitant]
     Active Substance: LEVOTHYROXINE
  7. MULTIVITAMIN [Concomitant]
     Active Substance: VITAMINS
  8. WELLBUTRIN [Concomitant]
     Active Substance: BUPROPION HYDROCHLORIDE
  9. VIT B 12 [Concomitant]

REACTIONS (5)
  - Condition aggravated [None]
  - Drug ineffective [None]
  - Pain in jaw [None]
  - Toothache [None]
  - Migraine [None]

NARRATIVE: CASE EVENT DATE: 20160912
